FAERS Safety Report 7742312-X (Version None)
Quarter: 2011Q3

REPORT INFORMATION
  Report Type: 
  Country: None (occurrence: None)
  Receive Date: 20110829
  Receipt Date: 20110822
  Transmission Date: 20111222
  Serious: Yes (Other)
  Sender: FDA-Public Use
  Company Number: DSA_47273_2011

PATIENT
  Sex: Female
  Weight: 98.4306 kg

DRUGS (6)
  1. XENAZINE [Suspect]
     Indication: TARDIVE DYSKINESIA
     Dosage: 12.5 MG QD ORAL), (12.5 MG BID ORAL)
     Route: 048
     Dates: start: 20110723, end: 20110726
  2. XENAZINE [Suspect]
     Indication: TARDIVE DYSKINESIA
     Dosage: 12.5 MG QD ORAL), (12.5 MG BID ORAL)
     Route: 048
     Dates: start: 20110701, end: 20110722
  3. ABILIFY [Concomitant]
  4. DOCUSATE [Concomitant]
  5. LAXATIVE [Concomitant]
  6. WELLBUTRIN [Concomitant]

REACTIONS (4)
  - BURNING SENSATION [None]
  - HYPOAESTHESIA [None]
  - POLYNEUROPATHY [None]
  - ANGER [None]
